FAERS Safety Report 5041227-8 (Version None)
Quarter: 2006Q3

REPORT INFORMATION
  Report Type: 
  Country: None (occurrence: None)
  Receive Date: 20060703
  Receipt Date: 20060628
  Transmission Date: 20061208
  Serious: Yes (Hospitalization)
  Sender: FDA-Public Use
  Company Number: FR-GLAXOSMITHKLINE-B0429094A

PATIENT
  Age: 2 Year
  Sex: Female
  Weight: 15 kg

DRUGS (3)
  1. CLAMOXYL IV [Suspect]
     Indication: GASTROENTERITIS
     Dosage: 150MG PER DAY
     Route: 042
     Dates: start: 20060503, end: 20060503
  2. DOLIPRANE [Suspect]
     Indication: GASTROENTERITIS
     Dosage: 150MG FOUR TIMES PER DAY
     Route: 048
     Dates: start: 20060503, end: 20060503
  3. PRIMPERAN TAB [Suspect]
     Indication: GASTROENTERITIS
     Dosage: 1UNIT PER DAY
     Route: 054
     Dates: start: 20060503, end: 20060503

REACTIONS (19)
  - ANALGESIC DRUG LEVEL INCREASED [None]
  - BLOOD CALCIUM DECREASED [None]
  - BLOOD GLUCOSE INCREASED [None]
  - COAGULATION FACTOR DECREASED [None]
  - DEPRESSED LEVEL OF CONSCIOUSNESS [None]
  - ELECTROENCEPHALOGRAM ABNORMAL [None]
  - ENCEPHALITIS [None]
  - FEELING ABNORMAL [None]
  - HAEMATEMESIS [None]
  - HAEMOGLOBIN DECREASED [None]
  - HEPATIC ENCEPHALOPATHY [None]
  - HEPATIC FAILURE [None]
  - HEPATITIS FULMINANT [None]
  - HEPATOCELLULAR DAMAGE [None]
  - MELAENA [None]
  - PLATELET COUNT DECREASED [None]
  - PROTHROMBIN LEVEL DECREASED [None]
  - VOMITING [None]
  - WHITE BLOOD CELL COUNT DECREASED [None]
